FAERS Safety Report 5066919-6 (Version None)
Quarter: 2006Q3

REPORT INFORMATION
  Report Type: 
  Country: None (occurrence: None)
  Receive Date: 20060801
  Receipt Date: 20060726
  Transmission Date: 20061208
  Serious: Yes (Other)
  Sender: FDA-Public Use
  Company Number: JP-BAYER-200613205GDS

PATIENT
  Age: 27 Year
  Sex: Male

DRUGS (3)
  1. VARDENAFIL [Suspect]
     Indication: PULMONARY HYPERTENSION
     Dosage: TOTAL DAILY DOSE: 10 MG  UNIT DOSE: 5 MG
     Route: 048
  2. O2 [Concomitant]
     Indication: PULMONARY HYPERTENSION
     Route: 065
  3. BERAPROST [Concomitant]
     Indication: PULMONARY HYPERTENSION
     Route: 065

REACTIONS (1)
  - ATRIAL FLUTTER [None]
